FAERS Safety Report 8874553 (Version 3)
Quarter: 2012Q4

REPORT INFORMATION
  Report Type: 
  Country: US (occurrence: US)
  Receive Date: 20121030
  Receipt Date: 20121220
  Transmission Date: 20130627
  Serious: No
  Sender: FDA-Public Use
  Company Number: US-PFIZER INC-2012266589

PATIENT

DRUGS (1)
  1. LYRICA [Suspect]
     Indication: RESTLESS LEG SYNDROME
     Dosage: 75 mg, 2x/day

REACTIONS (2)
  - Aspartate aminotransferase increased [Unknown]
  - Alanine aminotransferase increased [Unknown]
